FAERS Safety Report 17157956 (Version 1)
Quarter: 2019Q4

REPORT INFORMATION
  Report Type: Spontaneous
  Country: US (occurrence: US)
  Receive Date: 20191216
  Receipt Date: 20191216
  Transmission Date: 20200122
  Serious: Yes (Hospitalization)
  Sender: FDA-Public Use
  Company Number: NVSC2019US038717

PATIENT
  Sex: Female

DRUGS (1)
  1. GLEEVEC [Suspect]
     Active Substance: IMATINIB MESYLATE
     Indication: CHRONIC MYELOID LEUKAEMIA
     Dosage: UNK
     Route: 065

REACTIONS (14)
  - Arthralgia [Unknown]
  - Herpes zoster [Unknown]
  - Asthenia [Unknown]
  - Nausea [Unknown]
  - Myalgia [Unknown]
  - Drug ineffective [Unknown]
  - Pneumonia [Unknown]
  - Bone pain [Unknown]
  - Pruritus [Unknown]
  - Fatigue [Unknown]
  - Fall [Unknown]
  - Hypertension [Unknown]
  - Eye disorder [Unknown]
  - Diarrhoea [Unknown]
